FAERS Safety Report 5166893-8 (Version None)
Quarter: 2006Q4

REPORT INFORMATION
  Report Type: 
  Country: None (occurrence: None)
  Receive Date: 20061204
  Receipt Date: 20061204
  Transmission Date: 20070319
  Serious: Yes (Other)
  Sender: FDA-Public Use
  Company Number: None

PATIENT
  Age: 75 Year
  Sex: Female
  Weight: 49.8957 kg

DRUGS (1)
  1. AMITRIPTYLINE HCL [Suspect]
     Indication: PAIN MANAGEMENT
     Dates: start: 20061020, end: 20061027

REACTIONS (2)
  - HALLUCINATION [None]
  - MOTOR DYSFUNCTION [None]
